FAERS Safety Report 9508718 (Version 1)
Quarter: 2013Q3

REPORT INFORMATION
  Report Type: Spontaneous
  Country: AT (occurrence: AT)
  Receive Date: 20130909
  Receipt Date: 20130909
  Transmission Date: 20140515
  Serious: Yes (Other)
  Sender: FDA-Public Use
  Company Number: AT-VIIV HEALTHCARE LIMITED-B0921177A

PATIENT
  Age: 64 Year
  Sex: Male

DRUGS (5)
  1. COMBIVIR [Suspect]
     Indication: PRODUCT USED FOR UNKNOWN INDICATION
     Route: 065
  2. SQV [Concomitant]
  3. NELFINAVIR [Concomitant]
  4. NEVIRAPINE [Concomitant]
  5. LOPINAVIR + RITONAVIR [Concomitant]

REACTIONS (18)
  - Renal injury [Unknown]
  - Toxicity to various agents [Unknown]
  - Left ventricular hypertrophy [Unknown]
  - Motor dysfunction [Unknown]
  - Hemiparesis [Unknown]
  - Proteinuria [Unknown]
  - Depressive symptom [Unknown]
  - Renal disorder [Unknown]
  - Hyperparathyroidism [Unknown]
  - Vasculitis cerebral [Unknown]
  - AIDS dementia complex [Unknown]
  - Ascites [Unknown]
  - Emphysema [Unknown]
  - Hypertension [Unknown]
  - Amylase increased [Unknown]
  - Hepatic cirrhosis [Unknown]
  - Chronic hepatitis C [Unknown]
  - Coronary artery disease [Unknown]
